FAERS Safety Report 5305631-2 (Version None)
Quarter: 2007Q2

REPORT INFORMATION
  Report Type: 
  Country: None (occurrence: None)
  Receive Date: 20070416
  Receipt Date: 20070329
  Transmission Date: 20071010
  Serious: Yes (Other)
  Sender: FDA-Public Use
  Company Number: DSA_28606_2006

PATIENT
  Age: 57 Year
  Sex: Male

DRUGS (3)
  1. ATIVAN [Suspect]
     Dosage: 1 MG PRN PO
     Route: 048
  2. ZAPONEX [Suspect]
     Indication: SCHIZOPHRENIA
     Dosage: 12.5 MG Q DAY PO
     Route: 048
     Dates: start: 20060317, end: 20060324
  3. VALPROIC ACID [Concomitant]

REACTIONS (4)
  - DYSPNOEA [None]
  - SOMNOLENCE [None]
  - TACHYCARDIA [None]
  - VENTRICULAR EXTRASYSTOLES [None]
